APPROVED DRUG PRODUCT: OXYCODONE 5/APAP 500
Active Ingredient: ACETAMINOPHEN; OXYCODONE HYDROCHLORIDE
Strength: 500MG;5MG
Dosage Form/Route: TABLET;ORAL
Application: A085911 | Product #001
Applicant: BRISTOL MYERS SQUIBB PHARMA CO
Approved: Approved Prior to Jan 1, 1982 | RLD: No | RS: No | Type: DISCN